FAERS Safety Report 15154851 (Version 2)
Quarter: 2018Q3

REPORT INFORMATION
  Report Type: Spontaneous
  Country: PT (occurrence: PT)
  Receive Date: 20180717
  Receipt Date: 20180802
  Transmission Date: 20181010
  Serious: Yes (Hospitalization, Other)
  Sender: FDA-Public Use
  Company Number: PT-VIIV HEALTHCARE LIMITED-PT2018121711

PATIENT
  Age: 45 Year
  Sex: Female

DRUGS (13)
  1. TIVICAY [Suspect]
     Active Substance: DOLUTEGRAVIR SODIUM
     Indication: HIV INFECTION
     Dosage: UNK
     Route: 065
     Dates: start: 20151204, end: 20151226
  2. NORVIR [Suspect]
     Active Substance: RITONAVIR
     Dosage: 100 MG, UNK
     Route: 065
     Dates: start: 2015, end: 20151204
  3. NORVIR [Suspect]
     Active Substance: RITONAVIR
     Indication: HIV INFECTION
     Dosage: DOSAGE FORM: UNSPECIFIED
     Route: 065
     Dates: start: 201706
  4. PREZISTA [Suspect]
     Active Substance: DARUNAVIR ETHANOLATE
     Indication: HIV INFECTION
     Dosage: UNK
     Route: 048
     Dates: start: 2009, end: 2013
  5. TIVICAY [Suspect]
     Active Substance: DOLUTEGRAVIR SODIUM
     Dosage: 300 MG, QD
     Route: 065
     Dates: start: 20151227, end: 201702
  6. TIVICAY [Suspect]
     Active Substance: DOLUTEGRAVIR SODIUM
     Dosage: 50 MG, UNK
     Route: 065
     Dates: start: 201706
  7. TIVICAY [Suspect]
     Active Substance: DOLUTEGRAVIR SODIUM
     Dosage: UNK
     Route: 065
     Dates: start: 2015, end: 2015
  8. NORVIR [Suspect]
     Active Substance: RITONAVIR
     Dosage: DOSAGE FORM: UNSPECIFIED
     Route: 065
     Dates: start: 2009, end: 2013
  9. DESOGESTREL [Concomitant]
     Active Substance: DESOGESTREL
     Indication: HAEMORRHAGE
     Dosage: DOSAGE FORM: UNSPECIFIED
     Route: 065
  10. NORVIR [Suspect]
     Active Substance: RITONAVIR
     Dosage: 100 MG, UNK
     Route: 065
     Dates: start: 20151227, end: 201702
  11. PREZISTA [Suspect]
     Active Substance: DARUNAVIR ETHANOLATE
     Dosage: 800 MG, QD
     Route: 048
     Dates: start: 201706
  12. NORVIR [Suspect]
     Active Substance: RITONAVIR
     Dosage: DOSAGE FORM: UNSPECIFIED
     Route: 065
     Dates: start: 201407
  13. PREZISTA [Suspect]
     Active Substance: DARUNAVIR ETHANOLATE
     Dosage: 800 MG, QD
     Route: 048
     Dates: start: 20151227, end: 201702

REACTIONS (1)
  - Pneumonia [Recovered/Resolved]

NARRATIVE: CASE EVENT DATE: 20180616
